FAERS Safety Report 9947391 (Version 1)
Quarter: 2014Q1

REPORT INFORMATION
  Report Type: Report from Study
  Country: US (occurrence: US)
  Receive Date: 20140303
  Receipt Date: 20140303
  Transmission Date: 20141002
  Serious: No
  Sender: FDA-Public Use
  Company Number: US-ABBVIE-13P-163-1060472-00

PATIENT
  Age: 47 Year
  Sex: Female

DRUGS (3)
  1. HUMIRA [Suspect]
     Indication: CROHN^S DISEASE
     Dates: start: 20121222
  2. PHENERGAN [Concomitant]
     Indication: NAUSEA
  3. HYDROCODONE [Concomitant]
     Indication: PAIN

REACTIONS (1)
  - Rash pruritic [Not Recovered/Not Resolved]
